FAERS Safety Report 9669346 (Version 1)
Quarter: 2013Q4

REPORT INFORMATION
  Report Type: Report from Study
  Country: US (occurrence: US)
  Receive Date: 20131105
  Receipt Date: 20131105
  Transmission Date: 20140711
  Serious: Yes (Hospitalization)
  Sender: FDA-Public Use
  Company Number: US-009507513-1311USA000795

PATIENT
  Age: 69 Year
  Sex: Male

DRUGS (5)
  1. VICTRELIS [Suspect]
     Indication: HEPATITIS C
     Dosage: UNK
     Dates: start: 20130402, end: 20130613
  2. REBETOL [Suspect]
     Indication: HEPATITIS C
     Dosage: 600 MG, QD
     Dates: start: 20130531, end: 20130628
  3. REBETOL [Suspect]
     Dosage: 1200 MG, QD
     Dates: start: 20130308, end: 20130531
  4. PEGASYS [Suspect]
     Indication: HEPATITIS C
     Dosage: 180 MICROGRAM, QW
     Route: 058
     Dates: start: 20130308, end: 20130531
  5. PEGASYS [Suspect]
     Dosage: 140 MICROGRAM, QW
     Route: 058
     Dates: start: 20130531, end: 20130628

REACTIONS (4)
  - Perirectal abscess [Not Recovered/Not Resolved]
  - Blood urine [Unknown]
  - Haematochezia [Unknown]
  - Anaemia [Unknown]
